FAERS Safety Report 7523102-X (Version None)
Quarter: 2011Q2

REPORT INFORMATION
  Report Type: 
  Country: None (occurrence: None)
  Receive Date: 20110603
  Receipt Date: 20110527
  Transmission Date: 20111010
  Serious: Yes (Hospitalization, Other)
  Sender: FDA-Public Use
  Company Number: US-ABBOTT-11P-163-0729409-00

PATIENT
  Sex: Female

DRUGS (2)
  1. PRISTIQ [Concomitant]
     Indication: DEPRESSION
  2. HUMIRA [Suspect]
     Indication: PSORIASIS
     Dates: start: 20110227, end: 20110511

REACTIONS (4)
  - MIGRAINE [None]
  - HEAD INJURY [None]
  - LOSS OF CONSCIOUSNESS [None]
  - SUBARACHNOID HAEMORRHAGE [None]
